FAERS Safety Report 21791721 (Version 2)
Quarter: 2023Q1

REPORT INFORMATION
  Report Type: Report from Study
  Country: US (occurrence: US)
  Receive Date: 20221229
  Receipt Date: 20230130
  Transmission Date: 20230418
  Serious: No
  Sender: FDA-Public Use
  Company Number: US-ABBVIE-4251858

PATIENT
  Sex: Male

DRUGS (2)
  1. VENCLEXTA [Suspect]
     Active Substance: VENETOCLAX
     Indication: Acute myeloid leukaemia
     Dosage: TAKE ONE TABLET OF 50 MG (WITH TWO TABLETS OF 10 MG FOR TOTAL DOSE 70 MG) BY MOUTH DAILY DAYS ONE...
     Route: 048
  2. VENCLEXTA [Suspect]
     Active Substance: VENETOCLAX
     Indication: Acute myeloid leukaemia
     Dosage: TAKE FOUR TABLETS BY MOUTH ONCE DAILY AND  DAYS SIX THROUGH 14 OF A 28 DAY; FORM STRENGTH: 100 MI...
     Route: 048

REACTIONS (5)
  - Tendonitis [Recovering/Resolving]
  - Fatigue [Recovering/Resolving]
  - Nausea [Recovering/Resolving]
  - Arthralgia [Unknown]
  - Myalgia [Unknown]
